FAERS Safety Report 5021376-0 (Version None)
Quarter: 2006Q2

REPORT INFORMATION
  Report Type: 
  Country: None (occurrence: None)
  Receive Date: 20060608
  Receipt Date: 20060421
  Transmission Date: 20061013
  Serious: No
  Sender: FDA-Public Use
  Company Number: US-BRISTOL-MYERS SQUIBB COMPANY-13354220

PATIENT
  Sex: Female

DRUGS (6)
  1. SINEMET [Suspect]
     Indication: PARKINSON'S DISEASE
     Dosage: DURATION: 1.5-2 YEARS. 25MG/100MG 1 TAB TID; THEN 1.5 TAB TID; THEN 2 TABS TID
     Route: 048
  2. ENDOCET [Concomitant]
  3. ACTONEL [Concomitant]
  4. EFFEXOR [Concomitant]
  5. DONNATAL [Concomitant]
  6. MEPROBAMATE [Concomitant]

REACTIONS (2)
  - MOVEMENT DISORDER [None]
  - RASH [None]
